FAERS Safety Report 5536908-3 (Version None)
Quarter: 2007Q4

REPORT INFORMATION
  Report Type: 
  Country: None (occurrence: None)
  Receive Date: 20071207
  Receipt Date: 20071130
  Transmission Date: 20080405
  Serious: Yes (Hospitalization, Other)
  Sender: FDA-Public Use
  Company Number: PHFR2007GB03495

PATIENT
  Age: 76 Year
  Sex: Female

DRUGS (18)
  1. PAMIDRONATE DISODIUM [Suspect]
     Indication: HYPERCALCAEMIA
     Dosage: 30 MG, ONCE
     Route: 042
     Dates: start: 20071018
  2. PAMIDRONATE DISODIUM [Suspect]
     Route: 042
     Dates: start: 20071020
  3. ANUSOL                                  /NET/ [Concomitant]
     Route: 054
     Dates: start: 20040510
  4. ANUSOL                                  /NET/ [Concomitant]
     Dosage: UNK, PRN
     Route: 061
  5. ARICEPT [Concomitant]
     Dosage: 10 MG, QD
     Route: 048
     Dates: start: 20041002
  6. CAMCOLIT [Concomitant]
     Dosage: 250 MG, TID
     Route: 048
     Dates: start: 20040510
  7. CLOTRIMAZOLE [Concomitant]
     Dosage: 1 %, PRN
     Route: 061
     Dates: start: 20040730
  8. CETIRIZINE HYDROCHLORIDE [Concomitant]
     Dosage: 10 MG, QD
     Route: 048
     Dates: start: 20051004
  9. AMOXICILLIN + CLAVULANATE POTASSIUM [Concomitant]
     Route: 048
     Dates: start: 20071016
  10. DIAZEPAM [Concomitant]
     Dosage: 2 MG, PRN
     Route: 048
     Dates: start: 20070921
  11. FYBOGEL [Concomitant]
     Route: 048
     Dates: start: 20071001
  12. IBUPROFEN [Concomitant]
     Dosage: 6 %, TID
     Route: 065
  13. LACRI-LUBE [Concomitant]
     Route: 047
     Dates: start: 20040414
  14. LITHIUM CARBONATE [Concomitant]
     Route: 065
     Dates: end: 20071017
  15. MOVICOL [Concomitant]
     Dosage: 1 DF, QD
     Route: 048
     Dates: start: 20070726
  16. OXYBUTYNIN CHLORIDE [Concomitant]
     Dosage: 10 MG, QD
     Route: 048
     Dates: start: 20040510
  17. SODIUM PIDOLATE [Concomitant]
     Route: 048
     Dates: start: 20071016
  18. UNIROID [Concomitant]
     Dosage: 1 DF, BID
     Route: 061
     Dates: start: 20070413

REACTIONS (4)
  - ANTIPSYCHOTIC DRUG LEVEL INCREASED [None]
  - BLOOD CREATININE INCREASED [None]
  - BLOOD UREA INCREASED [None]
  - HYPERNATRAEMIA [None]
